FAERS Safety Report 5209155-2 (Version None)
Quarter: 2007Q1

REPORT INFORMATION
  Report Type: 
  Country: None (occurrence: None)
  Receive Date: 20070105
  Receipt Date: 20061221
  Transmission Date: 20070707
  Serious: Yes (Other)
  Sender: FDA-Public Use
  Company Number: 200610428BBE

PATIENT
  Age: 78 Year
  Sex: Female

DRUGS (5)
  1. GAMUNEX [Suspect]
     Indication: IDIOPATHIC THROMBOCYTOPENIC PURPURA
     Dosage: 60 G   ;  40G  - SEE IMAGE
     Route: 042
     Dates: start: 20061215, end: 20061217
  2. GAMUNEX [Suspect]
     Indication: METASTASIS
     Dosage: 60 G   ;  40G  - SEE IMAGE
     Route: 042
     Dates: start: 20061215, end: 20061217
  3. GAMUNEX [Suspect]
     Indication: IDIOPATHIC THROMBOCYTOPENIC PURPURA
     Dosage: 60 G   ;  40G  - SEE IMAGE
     Route: 042
     Dates: start: 20061218
  4. GAMUNEX [Suspect]
     Indication: METASTASIS
     Dosage: 60 G   ;  40G  - SEE IMAGE
     Route: 042
     Dates: start: 20061218
  5. O APHERESIS PLATELETS [Concomitant]

REACTIONS (6)
  - ANTIBODY TEST POSITIVE [None]
  - HAEMOGLOBIN DECREASED [None]
  - HAEMOPTYSIS [None]
  - LABORATORY TEST ABNORMAL [None]
  - RED BLOOD CELL AGGLUTINATION PRESENT [None]
  - RED BLOOD CELL SPHEROCYTES PRESENT [None]
